FAERS Safety Report 6669913-4 (Version None)
Quarter: 2010Q2

REPORT INFORMATION
  Report Type: 
  Country: None (occurrence: None)
  Receive Date: 20100406
  Receipt Date: 20100224
  Transmission Date: 20101027
  Serious: No
  Sender: FDA-Public Use
  Company Number: US-ALLERGAN-1000219US

PATIENT
  Age: 58 Year
  Sex: Female
  Weight: 68.027 kg

DRUGS (2)
  1. LATISSE [Suspect]
     Indication: GROWTH OF EYELASHES
     Dosage: 1 GTT, QHS
     Route: 061
     Dates: start: 20090222
  2. SYNTHROID [Concomitant]
     Indication: HYPOTHYROIDISM
     Dosage: UNK
     Dates: start: 19970101

REACTIONS (3)
  - DRUG INEFFECTIVE [None]
  - MADAROSIS [None]
  - SKIN HYPERPIGMENTATION [None]
